FAERS Safety Report 21075668 (Version 1)
Quarter: 2022Q3

REPORT INFORMATION
  Report Type: Spontaneous
  Country: US (occurrence: None)
  Receive Date: 20220712
  Receipt Date: 20220712
  Transmission Date: 20221027
  Serious: Yes (Death)
  Sender: FDA-Public Use
  Company Number: None

PATIENT
  Age: 59 Year
  Sex: Female

DRUGS (1)
  1. PEMBROLIZUMAB [Suspect]
     Active Substance: PEMBROLIZUMAB

REACTIONS (6)
  - Lung neoplasm malignant [None]
  - Metastases to central nervous system [None]
  - Unresponsive to stimuli [None]
  - Pulseless electrical activity [None]
  - Arrhythmia [None]
  - Electrocardiogram ST-T change [None]

NARRATIVE: CASE EVENT DATE: 20220101
